FAERS Safety Report 9737277 (Version 1)
Quarter: 2013Q4

REPORT INFORMATION
  Report Type: Spontaneous
  Country: US (occurrence: US)
  Receive Date: 20131206
  Receipt Date: 20131206
  Transmission Date: 20140711
  Serious: No
  Sender: FDA-Public Use
  Company Number: US-BIOGENIDEC-2013BI092428

PATIENT
  Sex: Female

DRUGS (6)
  1. TECFIDERA [Suspect]
     Indication: MULTIPLE SCLEROSIS
     Route: 048
     Dates: start: 201305
  2. ATENOLOL [Concomitant]
  3. GABAPENTIN [Concomitant]
  4. BUPROPION HCL [Concomitant]
  5. CALCIUM ER [Concomitant]
  6. CULTERELLE CAP [Concomitant]

REACTIONS (3)
  - Paraesthesia [Unknown]
  - Erythema [Unknown]
  - Pruritus [Unknown]
